FAERS Safety Report 21929729 (Version 2)
Quarter: 2023Q1

REPORT INFORMATION
  Report Type: Other
  Country: US (occurrence: None)
  Receive Date: 20230131
  Receipt Date: 20230323
  Transmission Date: 20230418
  Serious: Yes (Hospitalization)
  Sender: FDA-Public Use
  Company Number: US-ROCHE-3271555

PATIENT
  Age: 54 Year
  Sex: Male
  Weight: 150.73 kg

DRUGS (2)
  1. OCREVUS [Suspect]
     Active Substance: OCRELIZUMAB
     Indication: Relapsing-remitting multiple sclerosis
     Dosage: 300 MG DAY 1 AND DAY 15, THEN 600 MG Q 6 MONTHS, LAST OCRELIZUMAB DOSE WAS ON DEC/2022, DATE OF TREA
     Route: 042
     Dates: start: 202211
  2. COPAXONE [Concomitant]
     Active Substance: GLATIRAMER ACETATE

REACTIONS (2)
  - Infection [Not Recovered/Not Resolved]
  - Abscess limb [Not Recovered/Not Resolved]

NARRATIVE: CASE EVENT DATE: 20230114
